FAERS Safety Report 4723507-6 (Version None)
Quarter: 2005Q3

REPORT INFORMATION
  Report Type: 
  Country: None (occurrence: None)
  Receive Date: 20050725
  Receipt Date: 20050412
  Transmission Date: 20060218
  Serious: No
  Sender: FDA-Public Use
  Company Number: US-GLAXOSMITHKLINE-A0553780A

PATIENT
  Sex: Female

DRUGS (5)
  1. DYAZIDE [Suspect]
     Indication: HYPERTENSION
     Dosage: 37.5MG PER DAY
     Route: 048
  2. PAXIL [Suspect]
     Dosage: 10MG PER DAY
     Route: 048
  3. PAXIL [Concomitant]
  4. LIPITOR [Concomitant]
  5. FISH OIL [Concomitant]

REACTIONS (2)
  - DRY MOUTH [None]
  - SALIVARY GLAND ENLARGEMENT [None]
